FAERS Safety Report 6909177-7 (Version None)
Quarter: 2010Q3

REPORT INFORMATION
  Report Type: 
  Country: None (occurrence: None)
  Receive Date: 20100805
  Receipt Date: 20100111
  Transmission Date: 20110219
  Serious: No
  Sender: FDA-Public Use
  Company Number: US-TYCO HEALTHCARE/MALLINCKRODT-T201000648

PATIENT
  Sex: Male
  Weight: 88.435 kg

DRUGS (2)
  1. MORPHINE [Suspect]
     Indication: PAIN
     Dosage: 30 MG, Q12
     Dates: start: 20080101, end: 20100107
  2. MORPHINE [Suspect]
     Indication: BREAKTHROUGH PAIN
     Dosage: MORPHINE IR, 15 MG, TID
     Dates: start: 20080101, end: 20100107

REACTIONS (2)
  - FORMICATION [None]
  - PRURITUS [None]
